FAERS Safety Report 5016974-4 (Version None)
Quarter: 2006Q2

REPORT INFORMATION
  Report Type: 
  Country: None (occurrence: None)
  Receive Date: 20060526
  Receipt Date: 20060517
  Transmission Date: 20061013
  Serious: Yes (Other)
  Sender: FDA-Public Use
  Company Number: 2006-03-1549

PATIENT
  Age: 67 Year
  Sex: Female

DRUGS (3)
  1. CELESTAMINE TAB [Suspect]
     Indication: URTICARIA
     Dosage: 1 TAB QD ORAL
     Route: 048
     Dates: start: 20030709, end: 20030714
  2. CLARITIN [Concomitant]
  3. ALLEGRA [Concomitant]

REACTIONS (1)
  - AGRANULOCYTOSIS [None]
